FAERS Safety Report 5107232-8 (Version None)
Quarter: 2006Q3

REPORT INFORMATION
  Report Type: 
  Country: None (occurrence: None)
  Receive Date: 20060731
  Receipt Date: 20060511
  Transmission Date: 20061208
  Serious: No
  Sender: FDA-Public Use
  Company Number: 2006PV013632

PATIENT
  Age: 58 Year
  Sex: Female
  Weight: 74.8435 kg

DRUGS (4)
  1. BYETTA [Suspect]
     Indication: DIABETES MELLITUS NON-INSULIN-DEPENDENT
     Dosage: SEE IMAGE
     Route: 058
     Dates: start: 20060509, end: 20060510
  2. BYETTA [Suspect]
     Indication: DIABETES MELLITUS NON-INSULIN-DEPENDENT
     Dosage: SEE IMAGE
     Route: 058
     Dates: start: 20060511
  3. GLUCOPHAGE ^BRISTOL-MYYERS SQUIBB^ [Concomitant]
  4. AVANDIA [Concomitant]

REACTIONS (3)
  - ENERGY INCREASED [None]
  - INJECTION SITE RASH [None]
  - WEIGHT DECREASED [None]
